FAERS Safety Report 11685501 (Version 1)
Quarter: 2015Q4

REPORT INFORMATION
  Report Type: Spontaneous
  Country: NL (occurrence: NL)
  Receive Date: 20151030
  Receipt Date: 20151030
  Transmission Date: 20160304
  Serious: Yes (Other)
  Sender: FDA-Public Use
  Company Number: PHHY2015NL136117

PATIENT
  Sex: Female

DRUGS (4)
  1. AFINITOR [Suspect]
     Active Substance: EVEROLIMUS
     Dosage: 10 MG, UNK
     Route: 065
     Dates: start: 20130416
  2. AFINITOR [Suspect]
     Active Substance: EVEROLIMUS
     Indication: PRODUCT USED FOR UNKNOWN INDICATION
     Dosage: UNK
  3. AFINITOR [Suspect]
     Active Substance: EVEROLIMUS
     Dosage: 5 MG, UNK
     Route: 065
  4. AROMASIN [Concomitant]
     Active Substance: EXEMESTANE
     Indication: PRODUCT USED FOR UNKNOWN INDICATION
     Dosage: UNK
     Route: 065

REACTIONS (18)
  - Renal impairment [Recovered/Resolved]
  - Skin tightness [Recovered/Resolved]
  - Exercise tolerance decreased [Unknown]
  - Oral pain [Recovered/Resolved]
  - Oral herpes [Unknown]
  - Metastases to bone [Unknown]
  - Inflammation [Unknown]
  - Dry skin [Recovered/Resolved]
  - Headache [Recovered/Resolved]
  - Aphthous ulcer [Not Recovered/Not Resolved]
  - Kidney infection [Recovered/Resolved]
  - Lip dry [Recovered/Resolved]
  - Pruritus [Recovered/Resolved]
  - Asthenia [Unknown]
  - Aphthous ulcer [Recovered/Resolved]
  - Metastases to liver [Unknown]
  - Dry mouth [Recovered/Resolved]
  - Fatigue [Recovered/Resolved]

NARRATIVE: CASE EVENT DATE: 20130309
